FAERS Safety Report 9899911 (Version 1)
Quarter: 2014Q1

REPORT INFORMATION
  Report Type: Not Available
  Country: US (occurrence: US)
  Receive Date: 20140214
  Receipt Date: 20140214
  Transmission Date: 20141002
  Serious: No
  Sender: FDA-Public Use
  Company Number: US-VIVUS-2013V1000799

PATIENT
  Age: 58 Year
  Sex: Female
  Weight: 111.23 kg

DRUGS (7)
  1. QSYMIA 7.5MG/46MG [Suspect]
     Indication: WEIGHT DECREASED
     Route: 048
     Dates: start: 20131010, end: 20131016
  2. QSYMIA 7.5MG/46MG [Suspect]
     Route: 048
     Dates: start: 20131018, end: 20131018
  3. QSYMIA 3.75MG/23MG [Suspect]
     Indication: WEIGHT DECREASED
     Route: 048
     Dates: start: 20130926, end: 20131009
  4. LOTREL [Concomitant]
     Indication: HYPERTENSION
     Route: 048
     Dates: start: 2008
  5. HCTZ [Concomitant]
     Indication: HYPERTENSION
     Route: 048
     Dates: start: 2008
  6. WELLBUTRIN [Concomitant]
     Indication: DEPRESSION
     Route: 048
  7. VITAMIN D [Concomitant]
     Indication: VITAMIN D DECREASED
     Route: 048
     Dates: start: 2012

REACTIONS (1)
  - Feeling abnormal [Recovered/Resolved]
